FAERS Safety Report 24375279 (Version 2)
Quarter: 2024Q4

REPORT INFORMATION
  Report Type: Spontaneous
  Country: FR (occurrence: FR)
  Receive Date: 20240928
  Receipt Date: 20241001
  Transmission Date: 20250115
  Serious: Yes (Other)
  Sender: CELLTRION
  Company Number: None

PATIENT

DRUGS (6)
  1. INFLIXIMAB [Suspect]
     Active Substance: INFLIXIMAB
     Indication: Central nervous system immune reconstitution inflammatory response
     Dosage: 225 MG, 2 TOTAL
     Route: 042
     Dates: start: 20230421, end: 20230505
  2. LANSOPRAZOLE [Concomitant]
     Active Substance: LANSOPRAZOLE
     Dosage: 30 MG, DAILY
     Route: 048
  3. BACTRIM [Concomitant]
     Active Substance: SULFAMETHOXAZOLE\TRIMETHOPRIM
     Dosage: 3 DF 1/WEEK/BACTRIM FORTE
     Route: 048
     Dates: start: 20230423
  4. BACTRIM [Concomitant]
     Active Substance: SULFAMETHOXAZOLE\TRIMETHOPRIM
     Dosage: 1 DF, DAILY
     Route: 042
     Dates: start: 20230331, end: 20230422
  5. RIFAMPIN [Concomitant]
     Active Substance: RIFAMPIN
     Dosage: 1500 MG, DAILY
     Route: 048
     Dates: start: 20230104
  6. ISONIAZID [Concomitant]
     Active Substance: ISONIAZID
     Dosage: 250 MG, QD
     Route: 048
     Dates: start: 20230124

REACTIONS (2)
  - Pancreatitis [Recovered/Resolved]
  - Intentional product use issue [Unknown]

NARRATIVE: CASE EVENT DATE: 20230511
